FAERS Safety Report 7308328-2 (Version None)
Quarter: 2011Q1

REPORT INFORMATION
  Report Type: 
  Country: None (occurrence: None)
  Receive Date: 20110223
  Receipt Date: 20110210
  Transmission Date: 20110831
  Serious: Yes (Death, Hospitalization)
  Sender: FDA-Public Use
  Company Number: B0680488A

PATIENT
  Age: 54 Year
  Sex: Male

DRUGS (18)
  1. DIPHENOXYLATE HCL + ATROPINE SULFATE [Concomitant]
     Dates: start: 20091207
  2. MARAVIROC [Suspect]
     Indication: HIV INFECTION
     Dosage: 600MG TWICE PER DAY
     Dates: start: 20100824
  3. PROCHLORPERAZINE [Concomitant]
     Dates: start: 20100223
  4. ALBUTEROL [Concomitant]
     Dates: start: 20100513
  5. IBUPROFEN [Concomitant]
     Dates: start: 20100223
  6. SUMATRIPTAN [Concomitant]
     Dates: start: 20091207
  7. TRUVADA [Concomitant]
     Dosage: 1TAB PER DAY
     Dates: start: 20091207
  8. HYDROCODONE BITARTRATE + ACETAMINOPHEN [Concomitant]
     Dates: start: 20100513
  9. ZOLPIDEM [Concomitant]
     Dates: start: 20091207
  10. OMEPRAZOLE [Concomitant]
     Dates: start: 20100811
  11. DULOXETINE [Concomitant]
     Dates: start: 20100615
  12. RANITIDINE [Concomitant]
     Dates: start: 20100223
  13. AMLODIPINE [Concomitant]
     Dates: start: 20091207
  14. DRONABINOL [Concomitant]
     Dates: start: 20091207
  15. ETRAVIRINE [Concomitant]
     Dates: start: 20091207
  16. AMITRIPTYLINE [Concomitant]
     Dates: start: 20100824
  17. MOMETASONE FUROATE [Concomitant]
     Dates: start: 20100223
  18. INTELENCE [Concomitant]
     Dosage: 400MG PER DAY
     Dates: start: 20091207

REACTIONS (3)
  - PAIN [None]
  - LYMPHOMA [None]
  - PERFORMANCE STATUS DECREASED [None]
